FAERS Safety Report 6068906-8 (Version None)
Quarter: 2009Q1

REPORT INFORMATION
  Report Type: 
  Country: None (occurrence: None)
  Receive Date: 20090206
  Receipt Date: 20090127
  Transmission Date: 20090719
  Serious: Yes (Disabling, Other)
  Sender: FDA-Public Use
  Company Number: US-ELI_LILLY_AND_COMPANY-US200901005147

PATIENT
  Sex: Female
  Weight: 98.866 kg

DRUGS (5)
  1. BYETTA [Suspect]
     Indication: TYPE 2 DIABETES MELLITUS
     Dosage: 10 UG, 2/D
     Route: 058
     Dates: start: 20050101
  2. METFORMIN HCL [Concomitant]
     Indication: TYPE 2 DIABETES MELLITUS
     Dosage: UNK, UNKNOWN
     Route: 048
  3. GLIMEPIRIDE [Concomitant]
     Dosage: UNK, UNKNOWN
  4. LISINOPRIL [Concomitant]
     Indication: HYPERTENSION
     Dosage: UNK, UNKNOWN
  5. LASIX [Concomitant]
     Dosage: UNK, UNKNOWN
     Dates: end: 20081201

REACTIONS (19)
  - ABDOMINAL PAIN UPPER [None]
  - ARTHRITIS [None]
  - BACK INJURY [None]
  - BLOOD GLUCOSE INCREASED [None]
  - DEPRESSION [None]
  - FIBROMYALGIA [None]
  - HYPERSOMNIA [None]
  - INSOMNIA [None]
  - MEMORY IMPAIRMENT [None]
  - MOBILITY DECREASED [None]
  - MYALGIA [None]
  - OEDEMA PERIPHERAL [None]
  - PAIN [None]
  - PAIN IN EXTREMITY [None]
  - PHARYNGEAL ERYTHEMA [None]
  - PHARYNGITIS STREPTOCOCCAL [None]
  - POLYP [None]
  - RECTAL HAEMORRHAGE [None]
  - STRESS [None]
